FAERS Safety Report 5030037-3 (Version None)
Quarter: 2006Q2

REPORT INFORMATION
  Report Type: 
  Country: None (occurrence: None)
  Receive Date: 20060614
  Receipt Date: 20060603
  Transmission Date: 20061013
  Serious: Yes (Hospitalization, Other)
  Sender: FDA-Public Use
  Company Number: 2006072389

PATIENT
  Sex: Male

DRUGS (2)
  1. LYRICA [Suspect]
     Indication: ILL-DEFINED DISORDER
     Dosage: 200 MG (100 MG, 2 IN 1 D)
     Dates: start: 20060501, end: 20060101
  2. STATINS (HMG COA REDUCTASE INHIBITORS) [Suspect]
     Indication: ILL-DEFINED DISORDER
     Dates: end: 20060101

REACTIONS (3)
  - PNEUMONIA [None]
  - RENAL FAILURE ACUTE [None]
  - RHABDOMYOLYSIS [None]
